FAERS Safety Report 23910730 (Version 1)
Quarter: 2024Q2

REPORT INFORMATION
  Report Type: Spontaneous
  Country: US (occurrence: US)
  Receive Date: 20240528
  Receipt Date: 20240528
  Transmission Date: 20240716
  Serious: No
  Sender: FDA-Public Use
  Company Number: US-AVADEL CNS PHARMACEUTICALS, LLC-2024AVA00272

PATIENT
  Sex: Female

DRUGS (6)
  1. LUMRYZ [Suspect]
     Active Substance: SODIUM OXYBATE
     Dosage: 4.5 G
  2. LUMRYZ [Suspect]
     Active Substance: SODIUM OXYBATE
     Dosage: 6 G
  3. LUMRYZ [Suspect]
     Active Substance: SODIUM OXYBATE
     Dosage: 6 G
  4. LUMRYZ [Suspect]
     Active Substance: SODIUM OXYBATE
     Dosage: 7.5 G
  5. LUMRYZ [Suspect]
     Active Substance: SODIUM OXYBATE
     Dosage: 7.5 G
  6. LUMRYZ [Suspect]
     Active Substance: SODIUM OXYBATE
     Dosage: 9 G

REACTIONS (2)
  - Somnolence [Not Recovered/Not Resolved]
  - Depression [Recovering/Resolving]
